FAERS Safety Report 7383743-X (Version None)
Quarter: 2011Q1

REPORT INFORMATION
  Report Type: 
  Country: None (occurrence: None)
  Receive Date: 20110330
  Receipt Date: 20110322
  Transmission Date: 20110831
  Serious: Yes (Hospitalization, Other)
  Sender: FDA-Public Use
  Company Number: JP-ROCHE-767821

PATIENT
  Sex: Male

DRUGS (6)
  1. LEVOFOLINATE [Concomitant]
     Dosage: NAME: LEVOFOLINATE CALCIUM, DOSAGE IS UNCERTAIN.
     Route: 041
  2. IRINOTECAN HYDROCHLORIDE [Suspect]
     Indication: LARGE INTESTINE CARCINOMA
     Dosage: FORM: INJECTION.
     Route: 041
  3. FLUOROURACIL [Concomitant]
     Dosage: FORM: INJECTION, DOSAGE IS UNCERTAIN.
     Route: 041
  4. AVASTIN [Suspect]
     Indication: LARGE INTESTINE CARCINOMA
     Dosage: FORM: INJECTION.
     Route: 041
     Dates: start: 20110128, end: 20110311
  5. FLUOROURACIL [Concomitant]
     Dosage: INJECTION, DOSAGE IS UNCERTAIN.
     Route: 040
  6. FLUOROURACIL [Concomitant]
     Dosage: FORM: INJECTION
     Route: 041

REACTIONS (2)
  - HAEMOLYTIC ANAEMIA [None]
  - PLATELET COUNT DECREASED [None]
